FAERS Safety Report 8993224 (Version 1)
Quarter: 2013Q1

REPORT INFORMATION
  Report Type: Spontaneous
  Country: GB (occurrence: GB)
  Receive Date: 20130102
  Receipt Date: 20130102
  Transmission Date: 20140127
  Serious: Yes (Life-Threatening, Hospitalization)
  Sender: FDA-Public Use
  Company Number: GB-PFIZER INC-2013000769

PATIENT
  Age: 34 Year
  Sex: Female

DRUGS (13)
  1. PREGABALIN [Suspect]
     Dosage: 150 MG, 2X/DAY
     Route: 048
  2. ONDANSETRON HCL [Suspect]
     Dosage: 8MG BD-TDS
     Route: 048
  3. SERTRALINE HCL [Suspect]
  4. SUMATRIPTAN [Suspect]
     Dosage: UNKNOWN, ONLY USING ON THE WEEKENDS
     Route: 058
  5. SUMATRIPTAN [Suspect]
     Dosage: SUMATRIPTAN 6MG/0.5ML SOLUTION FOR INJECTION PRE-FILLEDSYRINGES WITH
     Route: 058
  6. DOMPERIDONE [Suspect]
     Dosage: 10MG TDS
     Route: 048
  7. OMEPRAZOLE [Concomitant]
     Dosage: 20 MG, 1X/DAY
     Route: 048
  8. NAPROXEN [Concomitant]
     Dosage: 250 MG 5 TIMES DAILY
     Route: 048
  9. LORATADINE [Concomitant]
     Dosage: 10 MG, 1X/DAY
     Route: 048
  10. BACLOFEN [Concomitant]
     Dosage: 10 MG FIVE TIMES DAILY
     Route: 048
  11. LAMOTRIGINE [Concomitant]
     Dosage: 25 MG, 2X/DAY
     Route: 048
     Dates: start: 20121203
  12. DIHYDROERGOTAMINE [Concomitant]
     Dosage: UNKNOWN
     Route: 042
  13. VERAPAMIL [Concomitant]
     Dosage: DRUG STOPPED ONE WEEK AGO.

REACTIONS (1)
  - Atrioventricular block [Not Recovered/Not Resolved]
